FAERS Safety Report 6385643-0 (Version None)
Quarter: 2009Q4

REPORT INFORMATION
  Report Type: 
  Country: None (occurrence: None)
  Receive Date: 20091002
  Receipt Date: 20081014
  Transmission Date: 20100525
  Serious: No
  Sender: FDA-Public Use
  Company Number: US-ASTRAZENECA-2008UW22584

PATIENT
  Age: 74 Year
  Sex: Female
  Weight: 79.4 kg

DRUGS (3)
  1. ARIMIDEX [Suspect]
     Indication: BREAST CANCER FEMALE
     Route: 048
     Dates: start: 20050401
  2. HYDROCHLOROTHIAZIDE [Concomitant]
     Dosage: 38/5MG QD
  3. IBUPROFEN [Concomitant]

REACTIONS (3)
  - ARTHRITIS [None]
  - EOSINOPHILIC PNEUMONIA [None]
  - PAIN [None]
